FAERS Safety Report 13882483 (Version 9)
Quarter: 2018Q3

REPORT INFORMATION
  Report Type: Report from Study
  Country: US (occurrence: US)
  Receive Date: 20170818
  Receipt Date: 20180801
  Transmission Date: 20181010
  Serious: Yes (Other)
  Sender: FDA-Public Use
  Company Number: US-SA-2017SA152260

PATIENT
  Age: 68 Year
  Sex: Male

DRUGS (1)
  1. LUMIZYME [Suspect]
     Active Substance: ALGLUCOSIDASE ALFA
     Indication: GLYCOGEN STORAGE DISEASE TYPE II
     Dosage: DOSE: 1850.00  FREQUENCY: Q2
     Route: 041
     Dates: start: 20140807

REACTIONS (8)
  - Device issue [Recovering/Resolving]
  - Yawning [Unknown]
  - Neck surgery [Unknown]
  - Nausea [Unknown]
  - Chills [Unknown]
  - Seizure [Unknown]
  - Tremor [Unknown]
  - Infusion related reaction [Recovering/Resolving]

NARRATIVE: CASE EVENT DATE: 2017
